FAERS Safety Report 22319031 (Version 3)
Quarter: 2023Q4

REPORT INFORMATION
  Report Type: Report from Study
  Country: US (occurrence: US)
  Receive Date: 20230515
  Receipt Date: 20231013
  Transmission Date: 20240110
  Serious: No
  Sender: FDA-Public Use
  Company Number: US-002147023-NVSC2023US110488

PATIENT
  Sex: Female

DRUGS (1)
  1. ENTRESTO [Suspect]
     Active Substance: SACUBITRIL\VALSARTAN
     Indication: Cardiac failure chronic
     Dosage: 24 MG, BID (24/26 MG)
     Route: 048
     Dates: start: 20230723

REACTIONS (3)
  - COVID-19 [Unknown]
  - Hypotension [Unknown]
  - Fatigue [Unknown]
